FAERS Safety Report 12559784 (Version 1)
Quarter: 2016Q3

REPORT INFORMATION
  Report Type: Spontaneous
  Country: US (occurrence: US)
  Receive Date: 20160715
  Receipt Date: 20160715
  Transmission Date: 20161109
  Serious: No
  Sender: FDA-Public Use
  Company Number: US-JNJFOC-20160509451

PATIENT
  Age: 79 Year
  Sex: Female
  Weight: 54.43 kg

DRUGS (3)
  1. PEPCID AC [Suspect]
     Active Substance: FAMOTIDINE
     Indication: DYSPEPSIA
     Dosage: DAILY OVER THE COURSE OF SEVERAL MONTHS, ONCE IN THE MORNING AND EVENING
     Route: 048
  2. PEPCID AC [Suspect]
     Active Substance: FAMOTIDINE
     Indication: NAUSEA
     Dosage: DAILY OVER THE COURSE OF SEVERAL MONTHS, ONCE IN THE MORNING AND EVENING
     Route: 048
  3. PEPCID AC [Suspect]
     Active Substance: FAMOTIDINE
     Indication: GASTROOESOPHAGEAL REFLUX DISEASE
     Dosage: DAILY OVER THE COURSE OF SEVERAL MONTHS, ONCE IN THE MORNING AND EVENING
     Route: 048

REACTIONS (3)
  - Incorrect drug administration duration [Unknown]
  - Product use issue [Unknown]
  - Off label use [Unknown]
